FAERS Safety Report 7269538-6 (Version None)
Quarter: 2011Q1

REPORT INFORMATION
  Report Type: 
  Country: None (occurrence: None)
  Receive Date: 20110202
  Receipt Date: 20110119
  Transmission Date: 20110831
  Serious: Yes (Other)
  Sender: FDA-Public Use
  Company Number: US-ELI_LILLY_AND_COMPANY-US201010004626

PATIENT
  Sex: Female

DRUGS (12)
  1. CALCIUM CITRATE WITH VITAMIN D [Concomitant]
     Dosage: UNK, DAILY (1/D)
  2. LISINOPRIL [Concomitant]
  3. XALATAN [Concomitant]
     Dosage: 0.005 %, EACH EVENING
     Route: 047
  4. TIMOLOL [Concomitant]
     Dosage: UNK, DAILY (1/D)
     Route: 047
  5. ALLOPURINOL [Concomitant]
     Indication: GOUT
     Dosage: UNK, EACH EVENING
  6. MULTIVITAMIN [Concomitant]
  7. FORTEO [Suspect]
     Dosage: 20 UG, DAILY (1/D)
  8. FOSINOPRIL SODIUM [Concomitant]
     Dosage: 10 MG, DAILY (1/D)
  9. LESCOL [Concomitant]
     Dosage: 40 MG, DAILY (1/D)
  10. FISH OIL [Concomitant]
     Dosage: UNK, DAILY (1/D)
  11. FORTEO [Suspect]
     Indication: OSTEOPOROSIS
     Dosage: 20 UG, DAILY (1/D)
  12. NIFEDICAL [Concomitant]
     Dosage: 30 MG, DAILY (1/D)

REACTIONS (10)
  - LYMPHOMA [None]
  - HYPOACUSIS [None]
  - MASS [None]
  - SKIN CANCER [None]
  - URINARY TRACT INFECTION [None]
  - OEDEMA PERIPHERAL [None]
  - CONTUSION [None]
  - FALL [None]
  - WEIGHT DECREASED [None]
  - VISUAL ACUITY REDUCED [None]
